FAERS Safety Report 20230552 (Version 1)
Quarter: 2021Q4

REPORT INFORMATION
  Report Type: Spontaneous
  Country: AE (occurrence: AE)
  Receive Date: 20211227
  Receipt Date: 20211227
  Transmission Date: 20220303
  Serious: Yes (Other)
  Sender: FDA-Public Use
  Company Number: AE-SUN PHARMACEUTICAL INDUSTRIES LTD-2021R1-321713

PATIENT
  Age: 45 Year
  Sex: Male

DRUGS (3)
  1. ATORVASTATIN [Suspect]
     Active Substance: ATORVASTATIN
     Indication: Glomerulonephritis membranous
     Dosage: UNK
     Route: 065
  2. PREDNISOLONE [Suspect]
     Active Substance: PREDNISOLONE
     Indication: Glomerulonephritis membranous
     Dosage: UNK
     Route: 065
  3. TACROLIMUS [Suspect]
     Active Substance: TACROLIMUS
     Indication: Glomerulonephritis membranous
     Dosage: UNK
     Route: 065

REACTIONS (1)
  - Osmotic demyelination syndrome [Recovering/Resolving]
